FAERS Safety Report 7023225-8 (Version None)
Quarter: 2010Q3

REPORT INFORMATION
  Report Type: 
  Country: None (occurrence: None)
  Receive Date: 20100930
  Receipt Date: 20100922
  Transmission Date: 20110219
  Serious: Yes (Other)
  Sender: FDA-Public Use
  Company Number: US-PFIZER INC-2007075811

PATIENT
  Sex: Female
  Weight: 70 kg

DRUGS (11)
  1. CHANTIX [Suspect]
     Dosage: 0.5 MG, 1X/DAY
     Route: 048
     Dates: start: 20070101, end: 20070101
  2. CHANTIX [Suspect]
     Dosage: UNK
     Route: 048
     Dates: start: 20100913
  3. NEXIUM [Concomitant]
     Indication: GASTROOESOPHAGEAL REFLUX DISEASE
     Dosage: UNK, DAILY
  4. SIMVASTATIN [Concomitant]
     Indication: BLOOD CHOLESTEROL INCREASED
     Dosage: UNK
  5. FLUOXETINE [Concomitant]
     Dosage: UNK
  6. TRICOR [Concomitant]
     Dosage: UNK
  7. ATENOLOL [Concomitant]
     Indication: HYPOTENSION
     Dosage: UNK
  8. MIDODRINE [Concomitant]
     Dosage: UNK
  9. LYRICA [Concomitant]
     Dosage: 300 MG, 1X/DAY
  10. TOVIAZ [Concomitant]
     Dosage: UNK, DAILY
  11. AGGRENOX [Concomitant]
     Dosage: UNK

REACTIONS (6)
  - CHRONIC OBSTRUCTIVE PULMONARY DISEASE [None]
  - DIZZINESS [None]
  - EMPHYSEMA [None]
  - IMPAIRED DRIVING ABILITY [None]
  - MENTAL DISORDER [None]
  - SLEEP DISORDER [None]
